FAERS Safety Report 9663808 (Version 1)
Quarter: 2013Q4

REPORT INFORMATION
  Report Type: Spontaneous
  Country: FR (occurrence: FR)
  Receive Date: 20131101
  Receipt Date: 20131101
  Transmission Date: 20140711
  Serious: Yes (Life-Threatening)
  Sender: FDA-Public Use
  Company Number: FR-NOVOPROD-391143

PATIENT
  Age: 86 Year
  Sex: Female

DRUGS (8)
  1. VICTOZA [Suspect]
     Indication: TYPE 2 DIABETES MELLITUS
     Dosage: TWICE PHARMACEUTICAL DOSES DAILY
     Route: 058
     Dates: start: 2011, end: 2013
  2. DIAMICRON [Concomitant]
     Indication: TYPE 2 DIABETES MELLITUS
     Route: 048
  3. LEVOTHYROX [Concomitant]
     Indication: HYPOTHYROIDISM
     Route: 048
  4. TRIATEC                            /00116401/ [Concomitant]
  5. FLECAINE [Concomitant]
     Route: 048
  6. INEGY [Concomitant]
     Dosage: 1 TAB, QD
     Route: 048
  7. EXFORGE [Concomitant]
     Dosage: 85 MG, QD
     Route: 048
  8. KARDEGIC [Concomitant]
     Dosage: 75 MG, QD
     Route: 048

REACTIONS (2)
  - Pancreatic carcinoma [Not Recovered/Not Resolved]
  - Metastases to peritoneum [Not Recovered/Not Resolved]
